FAERS Safety Report 6092797-2 (Version None)
Quarter: 2009Q1

REPORT INFORMATION
  Report Type: 
  Country: None (occurrence: None)
  Receive Date: 20090225
  Receipt Date: 20081014
  Transmission Date: 20090719
  Serious: Yes (Hospitalization)
  Sender: FDA-Public Use
  Company Number: FI-ROCHE-591663

PATIENT
  Sex: Male

DRUGS (10)
  1. XELODA [Suspect]
     Indication: COLORECTAL CANCER
     Route: 048
     Dates: start: 20081001, end: 20081004
  2. AVASTIN [Suspect]
     Indication: COLORECTAL CANCER
     Route: 042
     Dates: start: 20081001, end: 20081001
  3. OXALIPLATIN [Suspect]
     Indication: COLORECTAL CANCER
     Route: 042
     Dates: start: 20081001, end: 20081001
  4. PREDNISOLONE [Concomitant]
     Dosage: DOSAGE REGIMEN: 20 MG X 1
     Route: 048
     Dates: start: 20080911
  5. ACETAMINOPHEN [Concomitant]
     Dosage: DOSAGE REGIMEN: 1 G X 3
     Route: 048
     Dates: start: 20080911
  6. ZYPREXA [Concomitant]
     Dosage: DOSE: 10 MG X 1
  7. MIRTAZAPINE [Concomitant]
     Dosage: DOSE: 30 MG X 1
  8. TENOX [Concomitant]
     Dosage: 10 MG X 1
  9. EFFEXOR [Concomitant]
     Dosage: DOSE: 1 G X 3
  10. SOMAC [Concomitant]
     Dosage: DOSE: 40 MG X 1

REACTIONS (2)
  - FATIGUE [None]
  - GENERAL PHYSICAL HEALTH DETERIORATION [None]
